FAERS Safety Report 6397636-8 (Version None)
Quarter: 2009Q4

REPORT INFORMATION
  Report Type: 
  Country: None (occurrence: None)
  Receive Date: 20091012
  Receipt Date: 20090910
  Transmission Date: 20100525
  Serious: Yes (Death, Other)
  Sender: FDA-Public Use
  Company Number: US-BAXTER-2009BH003246

PATIENT
  Age: 62 Year
  Sex: Male

DRUGS (4)
  1. HEPARIN SODIUM INJECTION [Suspect]
     Indication: DRUG USE FOR UNKNOWN INDICATION
     Route: 065
  2. TOPROL-XL [Concomitant]
     Indication: DRUG USE FOR UNKNOWN INDICATION
     Route: 048
  3. AMBIEN [Concomitant]
     Indication: DRUG USE FOR UNKNOWN INDICATION
     Route: 065
  4. AMLODIPINE [Concomitant]
     Indication: DRUG USE FOR UNKNOWN INDICATION
     Route: 048

REACTIONS (6)
  - ACUTE RESPIRATORY FAILURE [None]
  - ELECTROMECHANICAL DISSOCIATION [None]
  - HEPARIN-INDUCED THROMBOCYTOPENIA [None]
  - HYPOXIA [None]
  - OESOPHAGEAL CARCINOMA [None]
  - TORSADE DE POINTES [None]
